FAERS Safety Report 8860630 (Version 1)
Quarter: 2012Q4

REPORT INFORMATION
  Report Type: 
  Country: US (occurrence: US)
  Receive Date: 20121025
  Receipt Date: 20121025
  Transmission Date: 20130627
  Serious: Yes (Hospitalization)
  Sender: FDA-Public Use
  Company Number: US-FRI-1000039634

PATIENT
  Age: 69 Year
  Sex: Female

DRUGS (9)
  1. VIIBRYD [Suspect]
     Indication: DEPRESSION
     Dosage: 10 mg
     Dates: start: 201209, end: 2012
  2. VIIBRYD [Suspect]
     Dosage: 20 mg
     Dates: start: 2012, end: 2012
  3. VIIBRYD [Suspect]
     Indication: DEPRESSION
     Dosage: 40 mg
     Dates: start: 2012, end: 201210
  4. PROZAC [Suspect]
     Indication: DEPRESSION
     Dosage: 40 mg
     Dates: end: 201209
  5. SIMVASTATIN [Concomitant]
  6. LISINOPRIL [Concomitant]
  7. ASPIRIN [Concomitant]
     Dosage: 81 mg
  8. LEVOTHYROXINE [Concomitant]
  9. AMLODIPINE [Concomitant]
     Dosage: 5 mg

REACTIONS (1)
  - Amnesia [Unknown]
